FAERS Safety Report 18725335 (Version 1)
Quarter: 2021Q1

REPORT INFORMATION
  Report Type: Spontaneous
  Country: US (occurrence: US)
  Receive Date: 20210111
  Receipt Date: 20210111
  Transmission Date: 20210419
  Serious: Yes (Life-Threatening, Hospitalization)
  Sender: FDA-Public Use
  Company Number: US-AMNEAL PHARMACEUTICALS-2020-AMRX-04171

PATIENT
  Age: 44 Year
  Sex: Male

DRUGS (1)
  1. BACLOFEN. [Suspect]
     Active Substance: BACLOFEN
     Indication: PAIN IN EXTREMITY
     Dosage: 10 MILLIGRAM, 2 /DAY
     Route: 065

REACTIONS (2)
  - Dyskinesia [Recovered/Resolved]
  - Toxic encephalopathy [Recovered/Resolved]
